FAERS Safety Report 18922724 (Version 1)
Quarter: 2021Q1

REPORT INFORMATION
  Report Type: Other
  Country: IT (occurrence: IT)
  Receive Date: 20210222
  Receipt Date: 20210222
  Transmission Date: 20210420
  Serious: Yes (Hospitalization, Other)
  Sender: FDA-Public Use
  Company Number: IT-ROCHE-2767981

PATIENT

DRUGS (7)
  1. IRINOTECAN [Suspect]
     Active Substance: IRINOTECAN
     Indication: COLORECTAL CANCER
     Dosage: ADMINISTERED AS A 120 MIN IV INFUSION IN 500 ML D5W
     Route: 042
  2. CAPECITABINE. [Suspect]
     Active Substance: CAPECITABINE
     Indication: COLORECTAL CANCER
     Dosage: (DAY 1, EVENING, TO DAY 15, MORNING), EVERY 3 WEEKS
     Route: 048
  3. LEVOLEUCOVORIN. [Suspect]
     Active Substance: LEVOLEUCOVORIN
     Indication: COLORECTAL CANCER
     Route: 042
  4. OXALIPLATIN. [Suspect]
     Active Substance: OXALIPLATIN
     Indication: COLORECTAL CANCER
     Dosage: GIVEN AS A 120 MIN IV INFUSION IN 500 ML D5W ? FOLFOX6 THERAPY?130 MG/M2 (DAY 1) ? XELOX THERAPY
     Route: 042
  5. 5?FLUOROURACIL [Suspect]
     Active Substance: FLUOROURACIL
     Route: 040
  6. BEVACIZUMAB. [Suspect]
     Active Substance: BEVACIZUMAB
     Indication: COLORECTAL CANCER
     Route: 065
  7. 5?FLUOROURACIL [Suspect]
     Active Substance: FLUOROURACIL
     Indication: COLORECTAL CANCER
     Route: 040

REACTIONS (5)
  - Drug interaction [Unknown]
  - Diarrhoea [Recovered/Resolved]
  - Gastrointestinal toxicity [Unknown]
  - Cardiotoxicity [Recovered/Resolved]
  - Haematotoxicity [Unknown]
